FAERS Safety Report 16532829 (Version 3)
Quarter: 2019Q3

REPORT INFORMATION
  Report Type: Report from Study
  Country: None (occurrence: US)
  Receive Date: 20190705
  Receipt Date: 20190729
  Transmission Date: 20191004
  Serious: Yes (Other)
  Sender: FDA-Public Use
  Company Number: US-ABBVIE-19K-163-2843640-00

PATIENT
  Age: 76 Year
  Sex: Female
  Weight: 72.3 kg

DRUGS (12)
  1. FLOMAX [Concomitant]
     Active Substance: TAMSULOSIN HYDROCHLORIDE
     Indication: PRODUCT USED FOR UNKNOWN INDICATION
     Route: 048
  2. OXYCODONE [Concomitant]
     Active Substance: OXYCODONE
     Indication: PAIN
     Dosage: 1-2 TABS PO EVERY 4 HRS AS NEEDED FOR PAIN
     Route: 048
  3. NITROQUICK [Concomitant]
     Active Substance: NITROGLYCERIN
     Indication: CHEST PAIN
     Dosage: AS NEEDED FOR CHEST PAIN UP TO 3 DOSES
     Route: 048
  4. PANTOPRAZOLE [Concomitant]
     Active Substance: PANTOPRAZOLE
     Indication: PRODUCT USED FOR UNKNOWN INDICATION
     Dosage: EVERY MORNING
     Route: 048
  5. CREON [Suspect]
     Active Substance: PANCRELIPASE AMYLASE\PANCRELIPASE LIPASE\PANCRELIPASE PROTEASE
     Indication: PANCREATIC FAILURE
     Dosage: EVERY DAY 4 CAPS BY MOUTH WITH MEALS AND 2 CAPS WITH SNACKS
     Route: 048
     Dates: start: 200910
  6. ZOFRAN [Concomitant]
     Active Substance: ONDANSETRON HYDROCHLORIDE
     Indication: VOMITING
     Dosage: TAKE 1 TAB PO EVERY 8HRS AS NEEDED FOR NAUSEA OR VOMITING
  7. ACCUPRIL [Concomitant]
     Active Substance: QUINAPRIL HYDROCHLORIDE
     Indication: PRODUCT USED FOR UNKNOWN INDICATION
     Route: 048
  8. PRAVASTATIN. [Concomitant]
     Active Substance: PRAVASTATIN
     Indication: PRODUCT USED FOR UNKNOWN INDICATION
     Dosage: EVERY EVENING
     Route: 048
  9. ZOFRAN [Concomitant]
     Active Substance: ONDANSETRON HYDROCHLORIDE
     Indication: NAUSEA
  10. ANTIVERT [Concomitant]
     Active Substance: MECLIZINE HYDROCHLORIDE
     Indication: VERTIGO
  11. PHENAZOPYRIDINE. [Concomitant]
     Active Substance: PHENAZOPYRIDINE
     Indication: PAIN
     Dosage: AS NEEDED FOR PAIN
     Route: 048
  12. ANTIVERT [Concomitant]
     Active Substance: MECLIZINE HYDROCHLORIDE
     Indication: DIZZINESS
     Dosage: EVERY 8HRS AS NEEDED FOR DIZZINESS - VERTIGO
     Route: 048

REACTIONS (10)
  - Small intestine carcinoma metastatic [Recovered/Resolved]
  - Abdominal adhesions [Unknown]
  - Gastrointestinal carcinoma [Not Recovered/Not Resolved]
  - Intestinal obstruction [Not Recovered/Not Resolved]
  - Small intestinal obstruction [Recovered/Resolved]
  - Hepatic cancer [Recovered/Resolved]
  - Depression [Unknown]
  - Coronary artery disease [Not Recovered/Not Resolved]
  - Chronic kidney disease [Recovered/Resolved]
  - Hepatic cancer recurrent [Not Recovered/Not Resolved]

NARRATIVE: CASE EVENT DATE: 2010
